FAERS Safety Report 5020079-6 (Version None)
Quarter: 2006Q2

REPORT INFORMATION
  Report Type: 
  Country: None (occurrence: None)
  Receive Date: 20060607
  Receipt Date: 20060227
  Transmission Date: 20061013
  Serious: Yes (Other)
  Sender: FDA-Public Use
  Company Number: DE-GLAXOSMITHKLINE-D0048878A

PATIENT
  Age: 9 Year
  Sex: Female
  Weight: 43 kg

DRUGS (1)
  1. LAMICTAL [Suspect]
     Dosage: 50MG TWICE PER DAY
     Route: 048

REACTIONS (7)
  - ASTHENIA [None]
  - CONVULSION [None]
  - DISTURBANCE IN ATTENTION [None]
  - EYE MOVEMENT DISORDER [None]
  - FATIGUE [None]
  - HYPERSENSITIVITY [None]
  - PRURITUS [None]
